FAERS Safety Report 20576013 (Version 1)
Quarter: 2022Q1

REPORT INFORMATION
  Report Type: Report from Study
  Country: CA (occurrence: CA)
  Receive Date: 20220310
  Receipt Date: 20220310
  Transmission Date: 20220423
  Serious: Yes (Other)
  Sender: FDA-Public Use
  Company Number: CA-JNJFOC-20220308341

PATIENT
  Age: 21 Year
  Sex: Female
  Weight: 60 kg

DRUGS (2)
  1. REMICADE [Suspect]
     Active Substance: INFLIXIMAB
     Indication: Colitis ulcerative
     Dosage: STRENGTH-5MG/KG INITIAL THERAPY START DATE 24-DEC-2021.
     Route: 042
     Dates: start: 20211211
  2. REMICADE [Suspect]
     Active Substance: INFLIXIMAB
     Dosage: ON 03-MAR-2022, INFLIXIMAB, RECOMBINANT DOSE INCREASED. RECEIVED STAT DOSE OF 10 MG/KG
     Route: 042
     Dates: start: 20220303

REACTIONS (2)
  - Clostridium difficile infection [Not Recovered/Not Resolved]
  - Gastrointestinal inflammation [Unknown]

NARRATIVE: CASE EVENT DATE: 20220303
